FAERS Safety Report 20182980 (Version 1)
Quarter: 2021Q4

REPORT INFORMATION
  Report Type: Spontaneous
  Country: GB (occurrence: GB)
  Receive Date: 20211214
  Receipt Date: 20211214
  Transmission Date: 20220303
  Serious: Yes (Hospitalization, Other)
  Sender: FDA-Public Use
  Company Number: GB-002147023-NVSC2021GB233337

PATIENT
  Age: 6 Year
  Sex: Male
  Weight: 17 kg

DRUGS (10)
  1. TOPOTECAN HYDROCHLORIDE [Suspect]
     Active Substance: TOPOTECAN HYDROCHLORIDE
     Indication: Refractory cancer
     Dosage: 0.75 MG/M2, QD (5 DAYS EVERY 21 DAYS)
     Route: 042
     Dates: start: 20210903, end: 20210907
  2. TOPOTECAN HYDROCHLORIDE [Suspect]
     Active Substance: TOPOTECAN HYDROCHLORIDE
     Dosage: 0.75 MG/M2, QD (5 DAYS EVERY 21 DAYS)
     Route: 042
     Dates: start: 20211006
  3. CYCLOPHOSPHAMIDE [Suspect]
     Active Substance: CYCLOPHOSPHAMIDE
     Indication: Refractory cancer
     Dosage: 250 MG/M2, QD (5 DAYS EVERY 21 DAYS)
     Route: 042
     Dates: start: 20210903, end: 20210907
  4. CYCLOPHOSPHAMIDE [Suspect]
     Active Substance: CYCLOPHOSPHAMIDE
     Dosage: 250 MG/M2, QD
     Route: 042
     Dates: start: 20211006, end: 20211010
  5. VENETOCLAX [Suspect]
     Active Substance: VENETOCLAX
     Indication: Refractory cancer
     Dosage: 120 MG, QD
     Route: 048
     Dates: start: 20210901, end: 20210901
  6. VENETOCLAX [Suspect]
     Active Substance: VENETOCLAX
     Dosage: 250 MG, QD
     Route: 048
     Dates: start: 20210902, end: 20210910
  7. VENETOCLAX [Suspect]
     Active Substance: VENETOCLAX
     Dosage: 250 MG, QD
     Route: 048
     Dates: start: 20211006
  8. COTRIMOXAZOLE [Concomitant]
     Active Substance: SULFAMETHOXAZOLE\TRIMETHOPRIM
     Indication: Prophylaxis
     Dosage: 240 MG, BID
     Route: 048
     Dates: start: 20210901
  9. LEVOMEPROMAZINE [Concomitant]
     Active Substance: LEVOMEPROMAZINE
     Indication: Vomiting
     Dosage: 6 MG ((3 MG,2 IN 1 D)
     Route: 048
     Dates: start: 20210903
  10. ONDANSETRON [Concomitant]
     Active Substance: ONDANSETRON
     Indication: Vomiting
     Dosage: 4 MG, PRN
     Route: 042
     Dates: start: 20210901, end: 20210903

REACTIONS (15)
  - Hypotension [Unknown]
  - Cytopenia [Unknown]
  - Chest pain [Unknown]
  - Oropharyngeal pain [Unknown]
  - C-reactive protein increased [Unknown]
  - Blood lactic acid decreased [Unknown]
  - Sepsis [Not Recovered/Not Resolved]
  - Clostridium difficile colitis [Unknown]
  - Haemoglobin decreased [Unknown]
  - Neutrophil count decreased [Unknown]
  - Platelet count decreased [Unknown]
  - White blood cell count decreased [Unknown]
  - Herpes simplex [Unknown]
  - Sinus tachycardia [Unknown]
  - Weight increased [Unknown]

NARRATIVE: CASE EVENT DATE: 20210901
